FAERS Safety Report 9471123 (Version 2)
Quarter: 2013Q3

REPORT INFORMATION
  Report Type: Spontaneous
  Country: FR (occurrence: FR)
  Receive Date: 20130822
  Receipt Date: 20130903
  Transmission Date: 20140515
  Serious: Yes (Hospitalization)
  Sender: FDA-Public Use
  Company Number: PHHY2013FR088411

PATIENT
  Age: 17 Year
  Sex: Female

DRUGS (3)
  1. PARACETAMOL [Suspect]
  2. ALPRAZOLAM [Suspect]
  3. CEFPODOXIME [Suspect]

REACTIONS (5)
  - Renal failure acute [Recovering/Resolving]
  - Hepatic failure [Unknown]
  - Hepatocellular injury [Unknown]
  - Toxicity to various agents [Unknown]
  - Intentional overdose [Unknown]
